FAERS Safety Report 9598853 (Version 1)
Quarter: 2013Q4

REPORT INFORMATION
  Report Type: Spontaneous
  Country: US (occurrence: US)
  Receive Date: 20131004
  Receipt Date: 20131004
  Transmission Date: 20140711
  Serious: No
  Sender: FDA-Public Use
  Company Number: US-AMGEN-USASP2013026097

PATIENT
  Age: 59 Year
  Sex: Female
  Weight: 46.26 kg

DRUGS (8)
  1. ENBREL [Suspect]
     Indication: PRODUCT USED FOR UNKNOWN INDICATION
     Dosage: 50 MG, QWK
     Route: 058
     Dates: start: 20130327
  2. OMEPRAZOLE [Concomitant]
     Dosage: 10 MG, UNK
  3. RANITIDINE [Concomitant]
     Dosage: 75 MG, UNK
  4. LIPITOR [Concomitant]
     Dosage: 10 MG, UNK
  5. VITAMIN D                          /00107901/ [Concomitant]
     Dosage: 400 UNIT, UNK
  6. CALCIUM [Concomitant]
     Dosage: 500 UNK, UNK
  7. COQ-10 [Concomitant]
     Dosage: 10 MG, UNK
  8. RECLAST [Concomitant]
     Dosage: 5/100ML, UNK

REACTIONS (1)
  - Injection site rash [Unknown]
